FAERS Safety Report 15431144 (Version 1)
Quarter: 2018Q4

REPORT INFORMATION
  Report Type: Spontaneous
  Country: US (occurrence: US)
  Receive Date: 20180926
  Receipt Date: 20180926
  Transmission Date: 20190204
  Serious: No
  Sender: FDA-Public Use
  Company Number: US-RB-032437-11

PATIENT
  Age: 34 Year
  Sex: Male

DRUGS (1)
  1. SUBOXONE [Suspect]
     Active Substance: BUPRENORPHINE HYDROCHLORIDE\NALOXONE HYDROCHLORIDE
     Indication: PRODUCT USED FOR UNKNOWN INDICATION
     Dosage: OTHER DOSING DETAILS UNKNOWN
     Route: 060

REACTIONS (4)
  - Feeling abnormal [Unknown]
  - Wrong technique in product usage process [Not Recovered/Not Resolved]
  - Drug dependence [Unknown]
  - Asthenia [Unknown]

NARRATIVE: CASE EVENT DATE: 2018
